FAERS Safety Report 8001763 (Version 4)
Quarter: 2012Q4

REPORT INFORMATION
  Report Type: 
  Country: US (occurrence: US)
  Receive Date: 20110622
  Receipt Date: 20121029
  Transmission Date: 20130627
  Serious: Yes (Other)
  Sender: FDA-Public Use
  Company Number: US-ROCHE-782744

PATIENT
  Sex: Female
  Weight: 61.29 kg

DRUGS (7)
  1. ACCUTANE [Suspect]
     Indication: ACNE
     Route: 048
     Dates: start: 1997, end: 1998
  2. ACCUTANE [Suspect]
     Route: 048
     Dates: start: 20011031, end: 20020103
  3. ACCUTANE [Suspect]
     Route: 048
     Dates: start: 20070827, end: 200801
  4. AMNESTEEM [Suspect]
     Indication: ACNE
     Route: 065
     Dates: start: 20040506, end: 20040905
  5. AMNESTEEM [Suspect]
     Route: 065
     Dates: start: 20051017, end: 200612
  6. SOTRET [Suspect]
     Indication: ACNE
     Route: 065
     Dates: start: 20040603, end: 20040703
  7. CLARAVIS [Suspect]
     Indication: ACNE
     Route: 065
     Dates: start: 20070827, end: 20080110

REACTIONS (9)
  - Colitis ulcerative [Unknown]
  - Inflammatory bowel disease [Unknown]
  - Anxiety [Unknown]
  - Stress [Unknown]
  - Depression [Unknown]
  - Headache [Unknown]
  - Blood lactate dehydrogenase increased [Unknown]
  - Blood triglycerides increased [Unknown]
  - Lip dry [Unknown]
